FAERS Safety Report 5430339-2 (Version None)
Quarter: 2007Q3

REPORT INFORMATION
  Report Type: 
  Country: None (occurrence: None)
  Receive Date: 20070830
  Receipt Date: 20070822
  Transmission Date: 20080115
  Serious: Yes (Disabling)
  Sender: FDA-Public Use
  Company Number: HQWYE766623AUG07

PATIENT
  Sex: Female
  Weight: 68.1 kg

DRUGS (2)
  1. EFFEXOR XR [Suspect]
     Indication: PANIC ATTACK
     Route: 048
     Dates: start: 20020101, end: 20070401
  2. EFFEXOR XR [Suspect]
     Route: 048
     Dates: start: 20070401, end: 20070601

REACTIONS (7)
  - BURNING SENSATION [None]
  - DIZZINESS [None]
  - DRUG WITHDRAWAL SYNDROME [None]
  - MUSCULOSKELETAL STIFFNESS [None]
  - NAUSEA [None]
  - NERVE INJURY [None]
  - PARAESTHESIA [None]
